FAERS Safety Report 13438728 (Version 1)
Quarter: 2017Q2

REPORT INFORMATION
  Report Type: Other
  Country: CH (occurrence: CH)
  Receive Date: 20170412
  Receipt Date: 20170412
  Transmission Date: 20170830
  Serious: Yes (Life-Threatening)
  Sender: FDA-Public Use
  Company Number: CH-MEDICURE INC.-1065329

PATIENT

DRUGS (2)
  1. AGGRASTAT [Suspect]
     Active Substance: TIROFIBAN HYDROCHLORIDE
  2. RECOMBINANT TISSUE PLASMINOGEN ACTIVATOR (RTPA) [Concomitant]

REACTIONS (1)
  - Carotid arterial embolus [Recovered/Resolved]
